FAERS Safety Report 7473276-4 (Version None)
Quarter: 2011Q1

REPORT INFORMATION
  Report Type: 
  Country: None (occurrence: None)
  Receive Date: 20110302
  Receipt Date: 20101117
  Transmission Date: 20110831
  Serious: Yes (Other)
  Sender: FDA-Public Use
  Company Number: 163-21880-10112235

PATIENT
  Age: 58 Year
  Sex: Male

DRUGS (4)
  1. TYLENOL PM (TYLENOL PM) [Concomitant]
  2. AMBIEN [Concomitant]
  3. REVLIMID [Suspect]
     Indication: MULTIPLE MYELOMA
     Dosage: 25 MG, 1 IN 1 D, PO; 25 MG, 21 DAYS, PO
     Route: 048
     Dates: start: 20091201
  4. REVLIMID [Suspect]
     Indication: MULTIPLE MYELOMA
     Dosage: 25 MG, 1 IN 1 D, PO; 25 MG, 21 DAYS, PO
     Route: 048
     Dates: start: 20100604

REACTIONS (5)
  - DRY MOUTH [None]
  - SALIVARY HYPERSECRETION [None]
  - THROMBOSIS [None]
  - DIARRHOEA [None]
  - ABDOMINAL DISCOMFORT [None]
